FAERS Safety Report 15566632 (Version 1)
Quarter: 2018Q4

REPORT INFORMATION
  Report Type: Spontaneous
  Country: US (occurrence: US)
  Receive Date: 20181030
  Receipt Date: 20181030
  Transmission Date: 20190205
  Serious: Yes (Hospitalization)
  Sender: FDA-Public Use
  Company Number: US-TEVA-2018-US-969272

PATIENT
  Age: 20 Year
  Sex: Female

DRUGS (8)
  1. IBUPROFEN. [Concomitant]
     Active Substance: IBUPROFEN
     Dosage: AS NEEDED
     Route: 065
  2. ETOPOSIDE. [Concomitant]
     Active Substance: ETOPOSIDE
     Indication: CUTANEOUS LYMPHOMA
     Dosage: 8-WEEK COURSE
     Route: 065
  3. MORPHINE [Concomitant]
     Active Substance: MORPHINE
     Indication: PAIN
     Dosage: ORAL MORPHINE EQUIVALENT (DOSE STEADILY INCREASED)
     Route: 048
  4. HYDROMORPHONE [Suspect]
     Active Substance: HYDROMORPHONE
     Indication: PROCEDURAL PAIN
     Dosage: STARTED ON POSTOPERATIVE DAY 13
     Route: 048
  5. MORPHINE [Concomitant]
     Active Substance: MORPHINE
     Dosage: DOSE STEADILY INCREASED
     Route: 048
  6. DEXAMETHASONE. [Concomitant]
     Active Substance: DEXAMETHASONE
     Indication: CUTANEOUS LYMPHOMA
     Dosage: 8-WEEK COURSE
     Route: 065
  7. BUPROPION. [Concomitant]
     Active Substance: BUPROPION
     Route: 065
  8. MORPHINE [Concomitant]
     Active Substance: MORPHINE
     Dosage: 500% INCREASE IN HER DAILY DOSE
     Route: 048

REACTIONS (2)
  - Neurotoxicity [Recovered/Resolved]
  - Chorea [Recovered/Resolved]
